FAERS Safety Report 5678433-5 (Version None)
Quarter: 2008Q1

REPORT INFORMATION
  Report Type: 
  Country: None (occurrence: None)
  Receive Date: 20080320
  Receipt Date: 20080310
  Transmission Date: 20080703
  Serious: Yes (Hospitalization)
  Sender: FDA-Public Use
  Company Number: GXKR2008AU02492

PATIENT
  Age: 78 Year
  Sex: Male

DRUGS (2)
  1. BRIMONIDINE TARTRATE [Suspect]
     Dosage: BID, BOTH EYES, BOTH EYES
     Dates: start: 20030101
  2. DORZOLAMIDE HYDROCHLORIDE W/TIMOLOL MALEATE (DORZOLAMIDE HYDROCHLORIDE [Concomitant]

REACTIONS (10)
  - ANGIOTENSIN CONVERTING ENZYME DECREASED [None]
  - BLINDNESS UNILATERAL [None]
  - CATARACT [None]
  - CONJUNCTIVITIS [None]
  - CORNEAL DEPOSITS [None]
  - CORNEAL EROSION [None]
  - IRIDOCYCLITIS [None]
  - IRIS ADHESIONS [None]
  - UVEITIS [None]
  - VISUAL ACUITY REDUCED [None]
